FAERS Safety Report 25246865 (Version 2)
Quarter: 2025Q4

REPORT INFORMATION
  Report Type: Spontaneous
  Country: JP (occurrence: JP)
  Receive Date: 20250428
  Receipt Date: 20251007
  Transmission Date: 20260118
  Serious: Yes (Other)
  Sender: GILEAD
  Company Number: JP-GILEAD-2025-0708923

PATIENT
  Age: 48 Year
  Sex: Male

DRUGS (1)
  1. YESCARTA [Suspect]
     Active Substance: AXICABTAGENE CILOLEUCEL
     Indication: Follicular lymphoma
     Dosage: UNK
     Route: 065
     Dates: start: 20250424, end: 20250424

REACTIONS (3)
  - Follicular lymphoma [Unknown]
  - Liver disorder [Unknown]
  - Manufacturing issue [Unknown]
